FAERS Safety Report 7687242-7 (Version None)
Quarter: 2011Q3

REPORT INFORMATION
  Report Type: 
  Country: None (occurrence: None)
  Receive Date: 20110816
  Receipt Date: 20110809
  Transmission Date: 20111222
  Serious: Yes (Hospitalization)
  Sender: FDA-Public Use
  Company Number: JP-B.I. PHARMACEUTICALS,INC./RIDGEFIELD-2011-BP-19979YA

PATIENT
  Age: 68 Year
  Sex: Male

DRUGS (7)
  1. OMEPRAZOLE [Concomitant]
  2. CONIEL [Concomitant]
  3. TAMSULOSIN HCL [Suspect]
     Indication: BENIGN PROSTATIC HYPERPLASIA
     Dosage: 0.2MG, UNKNOWN/D
     Route: 048
  4. MUCOSTA [Concomitant]
  5. TANATRIL [Concomitant]
  6. JANUVIA [Concomitant]
  7. ALLOPURINOL [Concomitant]

REACTIONS (1)
  - LIVER DISORDER [None]
